FAERS Safety Report 14994531 (Version 1)
Quarter: 2018Q2

REPORT INFORMATION
  Report Type: Spontaneous
  Country: US (occurrence: US)
  Receive Date: 20180521
  Receipt Date: 20180521
  Transmission Date: 20180711
  Serious: Yes (Disabling)
  Sender: FDA-Public Use
  Company Number: None

PATIENT
  Age: 23 Year
  Sex: Female
  Weight: 90 kg

DRUGS (7)
  1. LUPRON [Suspect]
     Active Substance: LEUPROLIDE ACETATE
     Indication: ENDOMETRIOSIS
     Dosage: 3 MONTH INJECTIONS; SUBCUTANEOUS?
     Route: 058
  2. EXALGO [Concomitant]
     Active Substance: HYDROMORPHONE HYDROCHLORIDE
  3. TRAMADOL. [Concomitant]
     Active Substance: TRAMADOL
  4. LUPRON DEPOT [Suspect]
     Active Substance: LEUPROLIDE ACETATE
  5. LEUPROLIDE ACETATE FOR SUSPENSION [Suspect]
     Active Substance: LEUPROLIDE ACETATE
  6. WELLBUTRIN [Concomitant]
     Active Substance: BUPROPION HYDROCHLORIDE
  7. MOTRIN [Concomitant]
     Active Substance: IBUPROFEN

REACTIONS (12)
  - Foot fracture [None]
  - Pelvic fracture [None]
  - Hand fracture [None]
  - Bone loss [None]
  - Fall [None]
  - Anxiety [None]
  - Depression [None]
  - Spinal fracture [None]
  - Tooth disorder [None]
  - Amnesia [None]
  - Osteogenesis imperfecta [None]
  - Insomnia [None]

NARRATIVE: CASE EVENT DATE: 20020601
